FAERS Safety Report 4917561-6 (Version None)
Quarter: 2006Q1

REPORT INFORMATION
  Report Type: 
  Country: None (occurrence: None)
  Receive Date: 20060221
  Receipt Date: 20050603
  Transmission Date: 20060701
  Serious: Yes (Other)
  Sender: FDA-Public Use
  Company Number: US-MERCK-0506USA00977

PATIENT
  Age: 79 Year
  Sex: Male

DRUGS (4)
  1. VIOXX [Suspect]
     Indication: ARTHRALGIA
     Route: 048
     Dates: start: 20011019, end: 20030101
  2. ASPIRIN [Concomitant]
     Route: 065
  3. ADVIL [Concomitant]
     Route: 065
  4. MOTRIN [Concomitant]
     Route: 065

REACTIONS (2)
  - CHEST PAIN [None]
  - MYOCARDIAL INFARCTION [None]
